FAERS Safety Report 18729333 (Version 2)
Quarter: 2021Q1

REPORT INFORMATION
  Report Type: Report from Study
  Country: IN (occurrence: IN)
  Receive Date: 20210112
  Receipt Date: 20210226
  Transmission Date: 20210419
  Serious: Yes (Life-Threatening, Hospitalization)
  Sender: FDA-Public Use
  Company Number: IN-MYLANLABS-2020M1104308

PATIENT
  Sex: Male

DRUGS (22)
  1. OXALIPLATIN. [Suspect]
     Active Substance: OXALIPLATIN
     Dosage: (120 MG,1 IN 2 WK)
     Route: 042
     Dates: start: 20201119, end: 20201210
  2. LEUCOVORIN                         /00566701/ [Suspect]
     Active Substance: LEUCOVORIN
     Indication: METASTASES TO LUNG
     Dosage: (600 MG,1 IN 2 WK)
     Route: 042
     Dates: start: 20201022
  3. HUMINSULIN [Concomitant]
     Active Substance: INSULIN HUMAN
     Indication: DIABETES MELLITUS
     Dosage: UNK
     Route: 058
  4. ABEVMY [Suspect]
     Active Substance: BEVACIZUMAB
     Indication: METASTATIC NEOPLASM
     Dosage: DAILY DOSE,(700 MG,1 IN 2 WK)
     Route: 042
     Dates: start: 20201008
  5. ABEVMY [Suspect]
     Active Substance: BEVACIZUMAB
     Indication: METASTASES TO LUNG
     Dosage: (700 MG,1 IN 2 WK)
     Route: 042
     Dates: start: 20201022
  6. LEUCOVORIN                         /00566701/ [Suspect]
     Active Substance: LEUCOVORIN
     Indication: METASTATIC NEOPLASM
     Dosage: DAILY DOSE, (600 MG,1 IN 2 WK)
     Route: 042
     Dates: start: 20201008, end: 20201210
  7. ACTRAPID                           /01223401/ [Concomitant]
     Indication: DIABETES MELLITUS
     Dosage: UNK
     Route: 058
  8. METFORMIN [Concomitant]
     Active Substance: METFORMIN HYDROCHLORIDE
     Indication: DIABETES MELLITUS
     Dosage: UNK, BID
     Route: 048
     Dates: start: 2020, end: 20201130
  9. ATORVA [Concomitant]
     Active Substance: ATORVASTATIN
     Indication: MYOCARDIAL ISCHAEMIA
     Dosage: UNK
     Route: 048
     Dates: start: 2019, end: 20201130
  10. FLUOROURACIL. [Suspect]
     Active Substance: FLUOROURACIL
     Indication: METASTASES TO LUNG
     Dosage: (4000 MG,1 IN 2 WK)
     Route: 042
     Dates: start: 20201008
  11. FLUOROURACIL. [Suspect]
     Active Substance: FLUOROURACIL
     Dosage: (3000 MG,1 IN 2 WK)
     Route: 042
     Dates: start: 20201119, end: 20201210
  12. OXALIPLATIN. [Suspect]
     Active Substance: OXALIPLATIN
     Dosage: (100 MG,1 IN 2 WK)
     Route: 042
     Dates: start: 20201105
  13. ABEVMY [Suspect]
     Active Substance: BEVACIZUMAB
     Dosage: (700 MG,1 IN 2 WK)
     Route: 042
     Dates: start: 20201105
  14. ABEVMY [Suspect]
     Active Substance: BEVACIZUMAB
     Dosage: (700 MG,1 IN 2 WK)
     Route: 042
     Dates: start: 20201119, end: 20201210
  15. FLUOROURACIL. [Suspect]
     Active Substance: FLUOROURACIL
     Dosage: (3600 MG,1 IN 2 WK)
     Route: 042
     Dates: start: 20201105
  16. LEUCOVORIN                         /00566701/ [Suspect]
     Active Substance: LEUCOVORIN
     Dosage: (400 MG,1 IN 2 WK)
     Route: 042
     Dates: start: 20201119
  17. TELPIL [Concomitant]
     Indication: HYPERTENSION
     Dosage: UNK, QD (1 IN 1 D)
     Route: 048
     Dates: start: 2005, end: 20201130
  18. TELMA?H [Concomitant]
     Indication: HYPERTENSION
     Dosage: UNK
     Dates: start: 2005, end: 20201130
  19. FLUOROURACIL. [Suspect]
     Active Substance: FLUOROURACIL
     Indication: METASTATIC NEOPLASM
     Dosage: (3600 MG,1 IN 2 WK)
     Route: 042
     Dates: start: 20201022
  20. OXALIPLATIN. [Suspect]
     Active Substance: OXALIPLATIN
     Indication: METASTATIC NEOPLASM
     Dosage: (120 MG,1 IN 2 WK)
     Route: 042
     Dates: start: 20201008
  21. OXALIPLATIN. [Suspect]
     Active Substance: OXALIPLATIN
     Indication: METASTASES TO LUNG
     Dosage: (100 MG,1 IN 2 WK)
     Route: 042
     Dates: start: 20201022
  22. LEUCOVORIN                         /00566701/ [Suspect]
     Active Substance: LEUCOVORIN
     Dosage: (600 MG,1 IN 2 WK)
     Route: 042
     Dates: start: 20201105

REACTIONS (2)
  - Diarrhoea [Recovered/Resolved]
  - Acute kidney injury [Recovered/Resolved]
